FAERS Safety Report 21007112 (Version 4)
Quarter: 2022Q3

REPORT INFORMATION
  Report Type: Report from Study
  Country: RU (occurrence: RU)
  Receive Date: 20220625
  Receipt Date: 20220930
  Transmission Date: 20221027
  Serious: Yes (Other)
  Sender: FDA-Public Use
  Company Number: RU-NOVARTISPH-NVSC2022RU145513

PATIENT
  Age: 72 Year
  Sex: Female

DRUGS (20)
  1. PIQRAY [Suspect]
     Active Substance: ALPELISIB
     Indication: Breast cancer
     Dosage: 300 MG
     Route: 065
     Dates: start: 20201016, end: 20201025
  2. PIQRAY [Suspect]
     Active Substance: ALPELISIB
     Indication: Mammoplasty
     Dosage: UNK
     Route: 065
     Dates: start: 20211103
  3. PIQRAY [Suspect]
     Active Substance: ALPELISIB
     Indication: Lymphadenectomy
     Dosage: 250 MG, QD (200 + 50 MG TABLETS)
     Route: 048
     Dates: start: 20220106, end: 20220610
  4. PIQRAY [Suspect]
     Active Substance: ALPELISIB
     Indication: Metastases to liver
  5. PIQRAY [Suspect]
     Active Substance: ALPELISIB
     Indication: Metastases to bone
  6. AFINITOR [Suspect]
     Active Substance: EVEROLIMUS
     Indication: Product used for unknown indication
     Dosage: UNK
     Route: 065
     Dates: start: 202106
  7. CALCIUM [Suspect]
     Active Substance: CALCIUM
     Indication: Product used for unknown indication
     Dosage: UNK
     Route: 065
     Dates: end: 202101
  8. METFORMIN [Suspect]
     Active Substance: METFORMIN HYDROCHLORIDE
     Indication: Product used for unknown indication
     Dosage: UNK
     Route: 065
  9. METFORMIN [Suspect]
     Active Substance: METFORMIN HYDROCHLORIDE
     Dosage: UNK
     Route: 065
     Dates: start: 20220112
  10. METOPROLOL SUCCINATE [Concomitant]
     Active Substance: METOPROLOL SUCCINATE
     Indication: Product used for unknown indication
     Dosage: 25 MG, QD
     Route: 065
  11. ETHAMSYLATE [Concomitant]
     Active Substance: ETHAMSYLATE
     Indication: Product used for unknown indication
     Dosage: 200 MG
     Route: 065
  12. ARIMIDEX [Concomitant]
     Active Substance: ANASTROZOLE
     Indication: Product used for unknown indication
     Dosage: UNK, QD
     Route: 065
  13. FASLODEX [Concomitant]
     Active Substance: FULVESTRANT
     Indication: Product used for unknown indication
     Dosage: UNK
     Route: 065
     Dates: start: 20201016, end: 202101
  14. DENOSUMAB [Concomitant]
     Active Substance: DENOSUMAB
     Indication: Product used for unknown indication
     Dosage: UNK
     Route: 065
     Dates: end: 202101
  15. ELIQUIS [Concomitant]
     Active Substance: APIXABAN
     Indication: Product used for unknown indication
     Dosage: UNK
     Route: 065
  16. UNACID [Concomitant]
     Indication: Product used for unknown indication
     Dosage: UNK
     Route: 065
  17. XELODA [Concomitant]
     Active Substance: CAPECITABINE
     Indication: Product used for unknown indication
     Dosage: UNK
     Route: 065
  18. AVASTIN [Concomitant]
     Active Substance: BEVACIZUMAB
     Indication: Product used for unknown indication
     Dosage: UNK
     Route: 065
  19. FULVESTRANT [Concomitant]
     Active Substance: FULVESTRANT
     Indication: Product used for unknown indication
     Dosage: UNK
     Route: 065
     Dates: start: 20220112
  20. CETRIN [Concomitant]
     Indication: Product used for unknown indication
     Dosage: UNK
     Route: 065
     Dates: start: 20220112

REACTIONS (22)
  - Tumour marker increased [Unknown]
  - Tachycardia [Unknown]
  - Osteonecrosis of jaw [Unknown]
  - Adverse event [Unknown]
  - Loss of consciousness [Unknown]
  - Metastasis [Unknown]
  - Malignant neoplasm progression [Unknown]
  - Gingival pain [Unknown]
  - Erythema [Recovered/Resolved]
  - Chills [Unknown]
  - Pain in extremity [Unknown]
  - Muscle twitching [Unknown]
  - Blood glucose abnormal [Recovered/Resolved]
  - Hypersensitivity [Unknown]
  - Palmar-plantar erythrodysaesthesia syndrome [Not Recovered/Not Resolved]
  - Vomiting [Unknown]
  - Nausea [Unknown]
  - Body temperature increased [Recovered/Resolved]
  - Body temperature increased [Recovered/Resolved]
  - Headache [Recovered/Resolved]
  - Rash [Recovered/Resolved]
  - Asthenia [Not Recovered/Not Resolved]

NARRATIVE: CASE EVENT DATE: 20201018
